FAERS Safety Report 10194806 (Version 1)
Quarter: 2014Q2

REPORT INFORMATION
  Report Type: Report from Study
  Country: US (occurrence: US)
  Receive Date: 20140526
  Receipt Date: 20140526
  Transmission Date: 20141212
  Serious: Yes (Other)
  Sender: FDA-Public Use
  Company Number: US-ROCHE-1405612

PATIENT
  Age: 16 Year
  Sex: Male
  Weight: 67.61 kg

DRUGS (2)
  1. NUTROPIN AQ [Suspect]
     Indication: GROWTH HORMONE DEFICIENCY
     Dosage: Q HS MWF AND 2.6 MG ALL OTHER DAYS.
     Route: 058
  2. NUTROPIN AQ [Suspect]
     Dosage: Q HS ALL OTHER DAYS
     Route: 058

REACTIONS (4)
  - Melanocytic naevus [Unknown]
  - Vitamin D deficiency [Unknown]
  - Hypothyroidism [Unknown]
  - Arthralgia [Unknown]
